FAERS Safety Report 6674391-5 (Version None)
Quarter: 2010Q2

REPORT INFORMATION
  Report Type: 
  Country: None (occurrence: None)
  Receive Date: 20100409
  Receipt Date: 20100330
  Transmission Date: 20101027
  Serious: Yes (Death, Other)
  Sender: FDA-Public Use
  Company Number: JP-PFIZER INC-2010021791

PATIENT
  Age: 53 Year
  Sex: Female
  Weight: 40 kg

DRUGS (9)
  1. SUNITINIB MALATE [Suspect]
     Indication: RENAL CELL CARCINOMA
     Dosage: 50 MG, 1X/DAY
     Route: 048
     Dates: start: 20090713
  2. MYSLEE [Concomitant]
     Dosage: UNK
     Route: 048
     Dates: start: 20090707
  3. MUCOSTA [Concomitant]
     Dosage: UNK
     Route: 048
     Dates: start: 20090701
  4. MUCODYNE [Concomitant]
     Dosage: UNK
     Route: 048
  5. PARIET [Concomitant]
     Dosage: UNK
     Route: 048
  6. LOXONIN [Concomitant]
     Dosage: UNK
     Route: 048
  7. SELBEX [Concomitant]
     Dosage: UNK
     Route: 048
     Dates: start: 20090708
  8. PANSPORIN T [Concomitant]
     Route: 048
     Dates: start: 20090709, end: 20090714
  9. AMLODIPINE [Concomitant]
     Route: 048
     Dates: start: 20090719, end: 20090731

REACTIONS (2)
  - DEATH [None]
  - HYPOTHYROIDISM [None]
